FAERS Safety Report 5150258-9 (Version None)
Quarter: 2006Q4

REPORT INFORMATION
  Report Type: 
  Country: None (occurrence: None)
  Receive Date: 20061109
  Receipt Date: 20061109
  Transmission Date: 20070319
  Serious: Yes (Other)
  Sender: FDA-Public Use
  Company Number: None

PATIENT
  Sex: Male
  Weight: 95 kg

DRUGS (6)
  1. AUGMENTIN '125' [Suspect]
     Indication: LUNG INFECTION
     Dosage: ONE TABLET TWO TIMES A DAY PO
     Route: 048
  2. AUGMENTIN '125' [Suspect]
     Indication: PHARYNGITIS
     Dosage: ONE TABLET TWO TIMES A DAY PO
     Route: 048
  3. BRICANYL [Concomitant]
  4. KETOTIFEN [Concomitant]
  5. MULTIVITAMINS WITH MINERALS [Concomitant]
  6. INHAILER VENTOLINE [Concomitant]

REACTIONS (2)
  - GASTROINTESTINAL DISORDER [None]
  - HEPATIC PAIN [None]
